FAERS Safety Report 24423745 (Version 1)
Quarter: 2024Q4

REPORT INFORMATION
  Report Type: Spontaneous
  Country: US (occurrence: None)
  Receive Date: 20241009
  Receipt Date: 20241009
  Transmission Date: 20250115
  Serious: Yes (Hospitalization)
  Sender: Public
  Company Number: None

PATIENT
  Age: 9 Year
  Sex: Male
  Weight: 54.8 kg

DRUGS (3)
  1. CALASPARGASE PEGOL [Suspect]
     Active Substance: CALASPARGASE PEGOL
     Dosage: OTHER FREQUENCY : ONCE;?
     Route: 042
     Dates: start: 20241008, end: 20241008
  2. vincristine IV [Concomitant]
     Dates: start: 20241008
  3. preservative free methotrexate IT [Concomitant]
     Dates: start: 20241008

REACTIONS (6)
  - Urticaria [None]
  - Hyperhidrosis [None]
  - Heart rate increased [None]
  - Dyspnoea [None]
  - Tachycardia [None]
  - Tachypnoea [None]

NARRATIVE: CASE EVENT DATE: 20241008
